FAERS Safety Report 4829266-0 (Version None)
Quarter: 2005Q4

REPORT INFORMATION
  Report Type: 
  Country: None (occurrence: None)
  Receive Date: 20051116
  Receipt Date: 20051107
  Transmission Date: 20060501
  Serious: Yes (Other)
  Sender: FDA-Public Use
  Company Number: US-GLAXOSMITHKLINE-A0581206A

PATIENT
  Age: 59 Year
  Sex: Female

DRUGS (15)
  1. BUPROPION HYDROCHLORIDE [Suspect]
     Indication: SMOKING CESSATION THERAPY
     Dosage: 150MG TWICE PER DAY
     Route: 048
     Dates: start: 20051024, end: 20051106
  2. CELEXA [Concomitant]
  3. CLONAZEPAM [Concomitant]
  4. LORTAB [Concomitant]
  5. LIPITOR [Concomitant]
  6. NEXIUM [Concomitant]
  7. PREVACID [Concomitant]
  8. DETROL [Concomitant]
  9. PHENERGAN [Concomitant]
  10. ALBUTEROL [Concomitant]
  11. OXYGEN [Concomitant]
  12. DUONEB [Concomitant]
  13. ADVAIR DISKUS 100/50 [Concomitant]
  14. CORTICOSTEROID [Concomitant]
  15. ANTIBIOTIC [Concomitant]

REACTIONS (9)
  - AGGRESSION [None]
  - AGITATION [None]
  - COGNITIVE DISORDER [None]
  - CONDITION AGGRAVATED [None]
  - DIZZINESS [None]
  - EMOTIONAL DISTRESS [None]
  - IRRITABILITY [None]
  - PSYCHOMOTOR HYPERACTIVITY [None]
  - SMOKER [None]
